FAERS Safety Report 8828557 (Version 1)
Quarter: 2012Q4

REPORT INFORMATION
  Report Type: 
  Country: BR (occurrence: BR)
  Receive Date: 20121005
  Receipt Date: 20121005
  Transmission Date: 20130627
  Serious: Yes (Other)
  Sender: FDA-Public Use
  Company Number: BR-SANOFI-AVENTIS-2012SA071715

PATIENT
  Age: 73 Year
  Sex: Female
  Weight: 68 kg

DRUGS (9)
  1. LANTUS [Suspect]
     Indication: DIABETES
     Route: 058
     Dates: start: 2004
  2. CLIKSTAR [Suspect]
     Indication: DEVICE THERAPY
     Dates: start: 2010
  3. CHOLECALCIFEROL [Concomitant]
     Indication: VITAMIN SUPPLEMENTATION
     Route: 048
     Dates: start: 2012
  4. FLUOXETINE [Concomitant]
     Indication: RELAXATION THERAPY
     Route: 048
     Dates: start: 2012
  5. OLCADIL [Concomitant]
     Indication: SEDATIVE THERAPY
     Route: 048
     Dates: start: 2012
  6. OMEPRAZOLE [Concomitant]
     Indication: GASTRIC DISORDER
     Route: 048
     Dates: start: 2007
  7. AMLODIPINE [Concomitant]
     Indication: BLOOD PRESSURE
     Route: 048
     Dates: start: 2002
  8. GALVUS [Concomitant]
     Indication: DIABETES
     Route: 048
     Dates: start: 2004
  9. GLUCOFORMIN [Concomitant]
     Indication: DIABETES
     Route: 048
     Dates: start: 1997

REACTIONS (11)
  - Glaucoma [Not Recovered/Not Resolved]
  - Vision blurred [Recovering/Resolving]
  - Fall [Unknown]
  - Pain [Not Recovered/Not Resolved]
  - Joint swelling [Recovering/Resolving]
  - Blood glucose decreased [Recovered/Resolved]
  - Dizziness [Recovered/Resolved]
  - Syncope [Recovered/Resolved]
  - Hyperglycaemia [Recovered/Resolved]
  - Somnolence [Recovered/Resolved]
  - Hypersomnia [Recovered/Resolved]
